FAERS Safety Report 6682420-8 (Version None)
Quarter: 2010Q2

REPORT INFORMATION
  Report Type: 
  Country: None (occurrence: None)
  Receive Date: 20100415
  Receipt Date: 20100406
  Transmission Date: 20101027
  Serious: Yes (Other)
  Sender: FDA-Public Use
  Company Number: JP-PFIZER INC-2010036086

PATIENT
  Age: 67 Year
  Sex: Female

DRUGS (6)
  1. FARMORUBICIN [Suspect]
     Indication: BREAST CANCER
     Dosage: 75 MG/M2, UNK
     Route: 042
  2. FILGRASTIM [Suspect]
     Indication: FEBRILE NEUTROPENIA
     Route: 042
     Dates: start: 20100302, end: 20100306
  3. ENDOXAN [Concomitant]
     Indication: BREAST CANCER
     Route: 042
  4. CRAVIT [Concomitant]
     Route: 048
  5. LORCAM [Concomitant]
     Route: 048
  6. ROCEPHIN [Concomitant]
     Route: 042

REACTIONS (3)
  - ECZEMA [None]
  - FEBRILE NEUTROPENIA [None]
  - INTERSTITIAL LUNG DISEASE [None]
